FAERS Safety Report 5278746-5 (Version None)
Quarter: 2007Q1

REPORT INFORMATION
  Report Type: 
  Country: None (occurrence: None)
  Receive Date: 20061213
  Receipt Date: 20050713
  Transmission Date: 20070707
  Serious: Yes (Hospitalization)
  Sender: FDA-Public Use
  Company Number: 2005UW06266

PATIENT
  Age: 7 Year
  Sex: Male

DRUGS (3)
  1. SEROQUEL [Suspect]
     Dosage: 300 MG HS PO
     Route: 048
  2. CONCERTA [Concomitant]
  3. RISPERDAL [Concomitant]

REACTIONS (1)
  - STEVENS-JOHNSON SYNDROME [None]
